FAERS Safety Report 5590919-0 (Version None)
Quarter: 2008Q1

REPORT INFORMATION
  Report Type: 
  Country: None (occurrence: None)
  Receive Date: 20080115
  Receipt Date: 20071227
  Transmission Date: 20080703
  Serious: Yes (Other)
  Sender: FDA-Public Use
  Company Number: US-BAYER-US-2007-036761

PATIENT
  Age: 36 Year
  Sex: Female
  Weight: 71 kg

DRUGS (3)
  1. MIRENA [Suspect]
     Indication: CONTRACEPTION
     Route: 015
     Dates: start: 20070525, end: 20070801
  2. PARAGARD [Concomitant]
     Dates: start: 20000101, end: 20070525
  3. ZITHROMAX [Concomitant]
     Indication: PROPHYLAXIS
     Route: 048

REACTIONS (11)
  - ABDOMINAL DISTENSION [None]
  - ABDOMINAL PAIN [None]
  - ARTHRALGIA [None]
  - FATIGUE [None]
  - HEADACHE [None]
  - OEDEMA PERIPHERAL [None]
  - PALPITATIONS [None]
  - PANIC ATTACK [None]
  - PELVIC PAIN [None]
  - URINARY TRACT INFECTION [None]
  - WEIGHT INCREASED [None]
